FAERS Safety Report 12200257 (Version 1)
Quarter: 2016Q1

REPORT INFORMATION
  Report Type: Spontaneous
  Country: TW (occurrence: TW)
  Receive Date: 20160322
  Receipt Date: 20160322
  Transmission Date: 20160526
  Serious: Yes (Hospitalization)
  Sender: FDA-Public Use
  Company Number: TW-MYLANLABS-2016M1012082

PATIENT

DRUGS (2)
  1. KETAMINE [Suspect]
     Active Substance: KETAMINE
     Dosage: 6-10 TIMES ALMOST DAILY TOTAL, 4-5 G/DAY
     Route: 045
  2. KETAMINE [Suspect]
     Active Substance: KETAMINE
     Indication: PRODUCT USED FOR UNKNOWN INDICATION
     Dosage: 6-10 TIMES ALMOST DAILY TOTAL, 4-5 G/DAY
     Route: 050

REACTIONS (12)
  - Physical disability [Unknown]
  - Drug withdrawal syndrome [Recovered/Resolved]
  - Abdominal pain [Unknown]
  - Dysphoria [Recovered/Resolved]
  - Fatigue [Recovered/Resolved]
  - Nausea [Recovered/Resolved]
  - Drug dependence [Not Recovered/Not Resolved]
  - Headache [Recovered/Resolved]
  - Cystitis [Unknown]
  - Anxiety [Recovered/Resolved]
  - Drug abuse [Not Recovered/Not Resolved]
  - Dizziness [Recovered/Resolved]
